FAERS Safety Report 9315249 (Version 1)
Quarter: 2013Q2

REPORT INFORMATION
  Report Type: Spontaneous
  Country: CH (occurrence: CH)
  Receive Date: 20130529
  Receipt Date: 20130529
  Transmission Date: 20140414
  Serious: Yes (Hospitalization)
  Sender: FDA-Public Use
  Company Number: CH-BRISTOL-MYERS SQUIBB COMPANY-18921510

PATIENT
  Age: 51 Year
  Sex: Female

DRUGS (4)
  1. PARAPLATIN INJ 150 MG [Suspect]
     Indication: BRONCHIAL CARCINOMA
     Route: 041
     Dates: start: 20121001, end: 20121204
  2. ETOPOPHOS [Interacting]
     Indication: BRONCHIAL CARCINOMA
     Route: 041
     Dates: start: 20121001, end: 20121204
  3. LEPONEX [Interacting]
     Indication: SCHIZOPHRENIA, PARANOID TYPE
     Dosage: LEPONEX 100MG TAB. ?ALSO RECEIVED LEPONEX 25MG TAB:25MG 1/1/CYCLIC :CONT
     Route: 041
  4. CALCIUM CARBONATE [Concomitant]
     Dosage: CONT

REACTIONS (4)
  - Febrile neutropenia [Recovered/Resolved]
  - Pancytopenia [Recovering/Resolving]
  - C-reactive protein increased [Recovered/Resolved]
  - Drug interaction [Unknown]
